FAERS Safety Report 10847320 (Version 5)
Quarter: 2016Q3

REPORT INFORMATION
  Report Type: Spontaneous
  Country: US (occurrence: US)
  Receive Date: 20150220
  Receipt Date: 20160928
  Transmission Date: 20161109
  Serious: No
  Sender: FDA-Public Use
  Company Number: US-PFIZER INC-2015065341

PATIENT
  Age: 63 Year
  Sex: Male

DRUGS (14)
  1. MIRTAZAPINE. [Concomitant]
     Active Substance: MIRTAZAPINE
     Indication: DEPRESSION
  2. LYRICA [Suspect]
     Active Substance: PREGABALIN
     Indication: FIBROMYALGIA
  3. HYDROCODONE/ACETAMINOPHEN [Concomitant]
     Active Substance: ACETAMINOPHEN\HYDROCODONE
     Indication: BACK PAIN
     Dosage: 1 DF, 4X/DAY (HYDROCODONE 7.5 MG-ACETAMINOPHEN 325 MG)
     Route: 048
  4. MIRTAZAPINE. [Concomitant]
     Active Substance: MIRTAZAPINE
     Indication: DECREASED APPETITE
     Dosage: UNK (15 MG TABLET 1/2 TAB BEFORE SUPPER)
     Dates: start: 20150511
  5. MIRTAZAPINE. [Concomitant]
     Active Substance: MIRTAZAPINE
     Indication: INSOMNIA
  6. OXYCODONE-ACETAMINOPHEN [Concomitant]
     Active Substance: ACETAMINOPHEN\OXYCODONE HYDROCHLORIDE
     Indication: BACK PAIN
     Dosage: UNK (OXYCODONE: 5 MG; ACETAMINOPHEN: 325 MG)(ONE OR 2 TABLETS BY MOUTH AT BEDTIME)
     Route: 048
  7. FINASTERIDE. [Concomitant]
     Active Substance: FINASTERIDE
     Indication: PROSTATOMEGALY
     Dosage: 5 MG, 1X/DAY (TAKE ONE TABLET BY MOUTH EVERY MORNING)
     Route: 048
  8. CIALIS [Concomitant]
     Active Substance: TADALAFIL
     Indication: DYSURIA
     Dosage: UNK, DAILY (TAKE ONE-HALF TO ONE TABLET BY MOUTH DAILY)
     Route: 048
  9. LYRICA [Suspect]
     Active Substance: PREGABALIN
     Indication: NEUROPATHY PERIPHERAL
     Dosage: 150 MG, 3X/DAY
     Route: 048
  10. DOXAZOSIN [Concomitant]
     Active Substance: DOXAZOSIN\DOXAZOSIN MESYLATE
     Indication: DYSURIA
     Dosage: UNK (TAKE 1/2 TO 1 TABLET BY MOUTH IN THE EVENING AT SUPPERTIME)
     Route: 048
  11. METOCLOPRAMIDE. [Concomitant]
     Active Substance: METOCLOPRAMIDE
     Indication: GASTROOESOPHAGEAL REFLUX DISEASE
     Dosage: 10 MG, 1X/DAY (1 TABLET AT NIGHT BEFORE BED)
  12. MIRTAZAPINE. [Concomitant]
     Active Substance: MIRTAZAPINE
     Indication: ANXIETY
  13. ALPRAZOLAM. [Concomitant]
     Active Substance: ALPRAZOLAM
     Indication: ANXIETY
     Dosage: UNK UNK, 3X/DAY (TAKE 1/2 OR 1 TABLET (1 MG) BY ORAL ROUTE 3 TIMES PER DAY)
     Route: 048
  14. FINASTERIDE. [Concomitant]
     Active Substance: FINASTERIDE
     Indication: DYSURIA

REACTIONS (4)
  - Amnesia [Unknown]
  - Pain in extremity [Unknown]
  - Spinal pain [Unknown]
  - Nightmare [Unknown]
